FAERS Safety Report 5583536-X (Version None)
Quarter: 2007Q4

REPORT INFORMATION
  Report Type: 
  Country: None (occurrence: None)
  Receive Date: 20071231
  Receipt Date: 20071220
  Transmission Date: 20080405
  Serious: Yes (Other)
  Sender: FDA-Public Use
  Company Number: 021868

PATIENT
  Age: 41 Year
  Sex: Female
  Weight: 81.6 kg

DRUGS (6)
  1. METHYLPREDNISOLONE [Suspect]
     Indication: PAIN
  2. ZOLOFT [Suspect]
     Indication: DEPRESSION
  3. PHENTERMINE [Concomitant]
  4. DARVOCET (DEXTROPROPOXYPHENE NAPSILATE) [Concomitant]
  5. FLEXERIL [Concomitant]
  6. SOMA [Concomitant]

REACTIONS (27)
  - AMNESIA [None]
  - CONFUSIONAL STATE [None]
  - DISTURBANCE IN ATTENTION [None]
  - DRUG EFFECT DECREASED [None]
  - DRUG INEFFECTIVE [None]
  - DYSSTASIA [None]
  - EAR INFECTION [None]
  - ECONOMIC PROBLEM [None]
  - FIBROMYALGIA [None]
  - HYPOAESTHESIA [None]
  - ILL-DEFINED DISORDER [None]
  - IMMUNE SYSTEM DISORDER [None]
  - LOSS OF LIBIDO [None]
  - MULTIPLE ALLERGIES [None]
  - NAUSEA [None]
  - OEDEMA PERIPHERAL [None]
  - OSTEOMYELITIS [None]
  - PARAESTHESIA [None]
  - PERFORMANCE STATUS DECREASED [None]
  - RESTLESS LEGS SYNDROME [None]
  - SINUSITIS [None]
  - SWELLING [None]
  - TOOTH ABSCESS [None]
  - TOOTH DISORDER [None]
  - UPPER RESPIRATORY TRACT INFECTION [None]
  - WEIGHT DECREASED [None]
  - WEIGHT INCREASED [None]
